FAERS Safety Report 8007363-9 (Version None)
Quarter: 2011Q4

REPORT INFORMATION
  Report Type: 
  Country: None (occurrence: None)
  Receive Date: 20111222
  Receipt Date: 20111222
  Transmission Date: 20120403
  Serious: Yes (Life-Threatening)
  Sender: FDA-Public Use
  Company Number: None

PATIENT
  Age: 32 Year
  Sex: Male
  Weight: 91.4 kg

DRUGS (1)
  1. IOPAMIDOL [Suspect]
     Dosage: 61.2 GM ONCE IV
     Route: 042
     Dates: start: 20110919, end: 20110919

REACTIONS (2)
  - ANAPHYLACTIC REACTION [None]
  - ANGIOEDEMA [None]
